FAERS Safety Report 5479580-3 (Version None)
Quarter: 2007Q4

REPORT INFORMATION
  Report Type: 
  Country: None (occurrence: None)
  Receive Date: 20071008
  Receipt Date: 20070927
  Transmission Date: 20080405
  Serious: Yes (Other)
  Sender: FDA-Public Use
  Company Number: DE-BRISTOL-MYERS SQUIBB COMPANY-12786810

PATIENT
  Age: 52 Year
  Sex: Female

DRUGS (2)
  1. CETUXIMAB [Suspect]
     Indication: COLORECTAL CANCER
     Dosage: 16-AUG-04, MOST RECENT INFUSION. 4TH INFUSION THUS FAR.
     Route: 041
     Dates: start: 20040719
  2. IRINOTECAN HCL [Suspect]
     Indication: COLORECTAL CANCER
     Dosage: 11-AUG-04, MOST RECENT INFUSION.  REC'D 2 INFUSIONS SO FAR.
     Route: 042
     Dates: start: 20040721

REACTIONS (2)
  - LEUKOPENIA [None]
  - NEUTROPENIA [None]
